FAERS Safety Report 5820147-2 (Version None)
Quarter: 2008Q3

REPORT INFORMATION
  Report Type: 
  Country: None (occurrence: None)
  Receive Date: 20080724
  Receipt Date: 20080718
  Transmission Date: 20090109
  Serious: Yes (Hospitalization)
  Sender: FDA-Public Use
  Company Number: US-BRISTOL-MYERS SQUIBB COMPANY-14264808

PATIENT
  Age: 68 Year
  Sex: Male
  Weight: 104 kg

DRUGS (5)
  1. ERBITUX [Suspect]
     Indication: HEAD AND NECK CANCER
     Dosage: STARTED 22MAY08 400MG/M2.THIS WAS 4TH DOSE WEEKLY 250MG/M2,HELD FOR A WEEK ON 11JUN08 DUE TO RASH
     Route: 042
     Dates: start: 20080625, end: 20080625
  2. CISPLATIN [Suspect]
     Indication: HEAD AND NECK CANCER
     Dosage: START DATE 22MAY08. START DATE OF COURSE ASSOCIATED WITH EXPEDITED REPORT 25JUN08. DAY 22 TREATMENT
     Dates: start: 20080619, end: 20080619
  3. RADIATION THERAPY [Suspect]
     Indication: HEAD AND NECK CANCER
     Dosage: 28 DOSAGEFORM= 56 GY. NUMBER OF FRACTIONS 28. NUMBER OF ELASPSED DAYS 33.
     Dates: start: 20080703, end: 20080703
  4. BISOPROLOL FUMARATE AND HYDROCHLOROTHIAZIDE [Concomitant]
     Dosage: 1 DOSAGEFORM = 10 (UNITS NOT MENTIONED)
  5. NORVASC [Concomitant]

REACTIONS (3)
  - DERMATITIS [None]
  - INFECTION [None]
  - STOMATITIS [None]
